FAERS Safety Report 15166059 (Version 1)
Quarter: 2018Q3

REPORT INFORMATION
  Report Type: Spontaneous
  Country: CH (occurrence: CH)
  Receive Date: 20180719
  Receipt Date: 20180719
  Transmission Date: 20181010
  Serious: Yes (Hospitalization, Other)
  Sender: FDA-Public Use
  Company Number: CH-OTSUKA-2018_022211

PATIENT
  Age: 29 Year
  Sex: Male
  Weight: 95 kg

DRUGS (5)
  1. ABILIFY [Suspect]
     Active Substance: ARIPIPRAZOLE
     Indication: SCHIZOPHRENIA
     Dosage: UNK
     Route: 048
     Dates: end: 201804
  2. CLOPIN ECO [Suspect]
     Active Substance: CLOZAPINE
     Indication: SCHIZOPHRENIA
     Dosage: UNK
     Route: 048
     Dates: end: 201804
  3. DITROPAN [Suspect]
     Active Substance: OXYBUTYNIN CHLORIDE
     Indication: PRODUCT USED FOR UNKNOWN INDICATION
     Dosage: UNK
     Route: 048
     Dates: end: 201804
  4. L?CARNITINE [Concomitant]
     Active Substance: LEVOCARNITINE
     Indication: PRODUCT USED FOR UNKNOWN INDICATION
     Dosage: UNK
     Route: 065
  5. ISOPRENALINE [Concomitant]
     Active Substance: ISOPROTERENOL HYDROCHLORIDE
     Indication: PRODUCT USED FOR UNKNOWN INDICATION
     Dosage: UNK
     Route: 065

REACTIONS (17)
  - Disturbance in attention [Recovering/Resolving]
  - Rhabdomyolysis [Recovering/Resolving]
  - Agitation [Recovering/Resolving]
  - Renal failure [Recovering/Resolving]
  - Chills [Recovering/Resolving]
  - Blood creatine phosphokinase increased [Unknown]
  - Seizure [Recovering/Resolving]
  - Sinus bradycardia [Unknown]
  - Pyrexia [Recovering/Resolving]
  - Mydriasis [Recovering/Resolving]
  - Somnolence [Recovering/Resolving]
  - Hyperhidrosis [Recovering/Resolving]
  - Neuroleptic malignant syndrome [Unknown]
  - Tachycardia [Recovering/Resolving]
  - Serotonin syndrome [Unknown]
  - Lactic acidosis [Recovering/Resolving]
  - Hepatic failure [Recovering/Resolving]

NARRATIVE: CASE EVENT DATE: 20180424
